FAERS Safety Report 6811353-9 (Version None)
Quarter: 2010Q2

REPORT INFORMATION
  Report Type: 
  Country: None (occurrence: None)
  Receive Date: 20100630
  Receipt Date: 20100203
  Transmission Date: 20101027
  Serious: No
  Sender: FDA-Public Use
  Company Number: US-AMGEN-KDL382859

PATIENT
  Sex: Male
  Weight: 83.5 kg

DRUGS (6)
  1. PROCRIT [Suspect]
     Indication: DRUG USE FOR UNKNOWN INDICATION
     Dates: start: 20090622, end: 20090811
  2. AMBIEN [Concomitant]
  3. HYDROXYUREA [Concomitant]
  4. EMCOR [Concomitant]
  5. PREDNISONE [Concomitant]
  6. AZACITIDINE [Concomitant]

REACTIONS (2)
  - BLOOD ERYTHROPOIETIN INCREASED [None]
  - DRUG INEFFECTIVE [None]
